FAERS Safety Report 7014592-X (Version None)
Quarter: 2010Q3

REPORT INFORMATION
  Report Type: 
  Country: None (occurrence: None)
  Receive Date: 20100924
  Receipt Date: 20100924
  Transmission Date: 20110219
  Serious: No
  Sender: FDA-Public Use
  Company Number: None

PATIENT
  Sex: Female
  Weight: 65.7716 kg

DRUGS (8)
  1. OXYCONTIN [Suspect]
     Indication: FIBROMYALGIA
     Dosage: 40 MG TAKE 1 Q 12HRS PO
     Route: 048
     Dates: start: 20100910, end: 20100923
  2. OXYCONTIN [Suspect]
     Indication: IRRITABLE BOWEL SYNDROME
     Dosage: 40 MG TAKE 1 Q 12HRS PO
     Route: 048
     Dates: start: 20100910, end: 20100923
  3. OXYCONTIN [Suspect]
     Indication: POST LAMINECTOMY SYNDROME
     Dosage: 40 MG TAKE 1 Q 12HRS PO
     Route: 048
     Dates: start: 20100910, end: 20100923
  4. OXYCONTIN [Suspect]
     Indication: SCOLIOSIS
     Dosage: 40 MG TAKE 1 Q 12HRS PO
     Route: 048
     Dates: start: 20100910, end: 20100923
  5. OXYCONTIN [Suspect]
     Indication: FIBROMYALGIA
     Dosage: 80 MG TAKE 2 AM-PM Q 12HRS PO
     Route: 048
     Dates: start: 20100910, end: 20100923
  6. OXYCONTIN [Suspect]
     Indication: IRRITABLE BOWEL SYNDROME
     Dosage: 80 MG TAKE 2 AM-PM Q 12HRS PO
     Route: 048
     Dates: start: 20100910, end: 20100923
  7. OXYCONTIN [Suspect]
     Indication: POST LAMINECTOMY SYNDROME
     Dosage: 80 MG TAKE 2 AM-PM Q 12HRS PO
     Route: 048
     Dates: start: 20100910, end: 20100923
  8. OXYCONTIN [Suspect]
     Indication: SCOLIOSIS
     Dosage: 80 MG TAKE 2 AM-PM Q 12HRS PO
     Route: 048
     Dates: start: 20100910, end: 20100923

REACTIONS (11)
  - BREAKTHROUGH PAIN [None]
  - DEPRESSED MOOD [None]
  - DISCOMFORT [None]
  - DISTRACTIBILITY [None]
  - DRUG INEFFECTIVE [None]
  - GASTROINTESTINAL SOUNDS ABNORMAL [None]
  - HEADACHE [None]
  - NAUSEA [None]
  - ORAL DISORDER [None]
  - PRODUCT FORMULATION ISSUE [None]
  - SLEEP DISORDER [None]
